FAERS Safety Report 14353393 (Version 2)
Quarter: 2018Q1

REPORT INFORMATION
  Report Type: Spontaneous
  Country: BR (occurrence: BR)
  Receive Date: 20180105
  Receipt Date: 20180110
  Transmission Date: 20180509
  Serious: Yes (Other)
  Sender: FDA-Public Use
  Company Number: BR-009507513-1801BRA000169

PATIENT
  Age: 62 Year
  Sex: Female
  Weight: 78 kg

DRUGS (3)
  1. REMERON SOLTAB [Suspect]
     Active Substance: MIRTAZAPINE
     Indication: DEPRESSION
     Dosage: 1 TABLET, ORALLY, DAILY
     Route: 048
     Dates: start: 20171225, end: 20171225
  2. REMERON SOLTAB [Suspect]
     Active Substance: MIRTAZAPINE
     Indication: ANXIETY
     Dosage: UNK
     Route: 048
     Dates: start: 20171230
  3. PONDERA [Concomitant]
     Active Substance: PAROXETINE HYDROCHLORIDE
     Indication: DEPRESSION
     Dosage: 10 MG, UNK
     Route: 048

REACTIONS (3)
  - Dizziness [Recovered/Resolved]
  - Vomiting [Recovered/Resolved]
  - Dysstasia [Recovered/Resolved]

NARRATIVE: CASE EVENT DATE: 20171225
